FAERS Safety Report 5121093-2 (Version None)
Quarter: 2006Q4

REPORT INFORMATION
  Report Type: 
  Country: None (occurrence: None)
  Receive Date: 20061002
  Receipt Date: 20060920
  Transmission Date: 20070319
  Serious: Yes (Other)
  Sender: FDA-Public Use
  Company Number: 2006113805

PATIENT
  Age: 70 Year
  Sex: Male

DRUGS (1)
  1. SULPERAZON (SULBACTAM, CEFOPERAZONE) [Suspect]
     Indication: INFECTION
     Dosage: 1 GRAM, INTRAVENOUS
     Route: 042
     Dates: start: 20060530, end: 20060605

REACTIONS (2)
  - JAUNDICE [None]
  - LIVER DISORDER [None]
